FAERS Safety Report 5107901-X (Version None)
Quarter: 2006Q3

REPORT INFORMATION
  Report Type: 
  Country: None (occurrence: None)
  Receive Date: 20060914
  Receipt Date: 20060822
  Transmission Date: 20061208
  Serious: Yes (Other)
  Sender: FDA-Public Use
  Company Number: 2006SP000082

PATIENT
  Age: 66 Year
  Sex: Female

DRUGS (2)
  1. PEG-INTRON [Suspect]
     Indication: HEPATITIS C
     Dosage: QW; SC
     Route: 058
     Dates: start: 20060623, end: 20060728
  2. REBETOL [Suspect]
     Indication: HEPATITIS C
     Dosage: QD; PO
     Route: 048
     Dates: start: 20060623, end: 20060728

REACTIONS (5)
  - ANOREXIA [None]
  - DEHYDRATION [None]
  - PYELONEPHRITIS [None]
  - PYREXIA [None]
  - URINARY TRACT INFECTION [None]
